FAERS Safety Report 21467144 (Version 1)
Quarter: 2022Q4

REPORT INFORMATION
  Report Type: Spontaneous
  Country: US (occurrence: US)
  Receive Date: 20221017
  Receipt Date: 20221017
  Transmission Date: 20230112
  Serious: Yes (Other)
  Sender: FDA-Public Use
  Company Number: US-MYLANLABS-2022M1114317

PATIENT
  Age: 81 Year
  Sex: Female
  Weight: 63.5 kg

DRUGS (17)
  1. DILANTIN [Suspect]
     Active Substance: PHENYTOIN
     Indication: Epilepsy
     Dosage: 100 MILLIGRAM, BID
     Route: 048
  2. DILANTIN [Suspect]
     Active Substance: PHENYTOIN
     Indication: Seizure
  3. PHENOBARBITAL [Concomitant]
     Active Substance: PHENOBARBITAL
     Dosage: 57 MILLIGRAM
     Route: 048
  4. PHENOBARBITAL [Concomitant]
     Active Substance: PHENOBARBITAL
     Dosage: 60 MILLIGRAM, BID (MORNING AND NIGHT)
     Route: 065
  5. SYNTHROID [Concomitant]
     Active Substance: LEVOTHYROXINE SODIUM
     Dosage: 1 MG AND 1.2 MG TABLET IN THE MORNING
     Route: 048
  6. STRESSTABS WITH ZINC [Concomitant]
     Dosage: 600 MILLIGRAM, QD (ONCE DAILY)
     Route: 048
  7. VIOKASE [Concomitant]
     Active Substance: PANCRELIPASE
     Dosage: 2 DOSAGE FORM, TID (2 TAB 3 TIMES A DAY)
     Route: 048
  8. PHAZYME [Concomitant]
     Active Substance: DIMETHICONE 410
     Dosage: 95 MILLIGRAM, BID (95MG SUPPOSED TO BE THRICE DAILY BUT SHE ONLY TAKE IT TWICE DAILY)
     Route: 048
  9. COLACE [Concomitant]
     Active Substance: DOCUSATE SODIUM
     Dosage: 100 MILLIGRAM, BID (TWICE A DAY)
     Route: 048
  10. PRILOSEC [Concomitant]
     Active Substance: OMEPRAZOLE MAGNESIUM
     Dosage: 20 MILLIGRAM, BID (TWICE A DAY)
     Route: 048
  11. VITAMIN B12 [Concomitant]
     Active Substance: CYANOCOBALAMIN
     Dosage: 500 MILLIGRAM, BID (TWICE DAILY)
     Route: 048
  12. BIOTIN [Concomitant]
     Active Substance: BIOTIN
     Dosage: 300 MICROGRAM, BID (TWICE A DAY)
     Route: 048
  13. CARAFATE [Concomitant]
     Active Substance: SUCRALFATE
     Dosage: UNK UNK, BID (TWICE A DAY)
     Route: 048
  14. HYDROCHLOROTHIAZIDE [Concomitant]
     Active Substance: HYDROCHLOROTHIAZIDE
     Dosage: 20 MILLIGRAM, QD (AT BED TIME)
     Route: 048
  15. SINGULAIR [Concomitant]
     Active Substance: MONTELUKAST SODIUM
     Dosage: 10 MILLIGRAM, QD (AT BED TIME)
     Route: 048
  16. CREON [Concomitant]
     Active Substance: PANCRELIPASE AMYLASE\PANCRELIPASE LIPASE\PANCRELIPASE PROTEASE
     Dosage: UNK UNK, BID (TWICE A DAY)
     Route: 048
  17. PERI-COLACE [Concomitant]
     Active Substance: CASANTHRANOL\DOCUSATE SODIUM
     Dosage: UNK, BID (TWICE A DAY)
     Route: 048

REACTIONS (15)
  - Loss of consciousness [Unknown]
  - Seizure [Not Recovered/Not Resolved]
  - Condition aggravated [Not Recovered/Not Resolved]
  - Yawning [Unknown]
  - Red blood cell count decreased [Unknown]
  - White blood cell count decreased [Unknown]
  - Haematocrit decreased [Unknown]
  - Mean cell volume increased [Unknown]
  - Platelet count decreased [Unknown]
  - Lymphocyte count decreased [Unknown]
  - Blood glucose decreased [Unknown]
  - Drug level decreased [Unknown]
  - Amino acid level decreased [Unknown]
  - Somnolence [Unknown]
  - Therapeutic product effect decreased [Unknown]

NARRATIVE: CASE EVENT DATE: 20220912
